FAERS Safety Report 11443341 (Version 1)
Quarter: 2015Q3

REPORT INFORMATION
  Report Type: Spontaneous
  Country: US (occurrence: US)
  Receive Date: 20150901
  Receipt Date: 20150901
  Transmission Date: 20151125
  Serious: No
  Sender: FDA-Public Use
  Company Number: US-LUNDBECK-DKLU2003192

PATIENT

DRUGS (5)
  1. CLOBAZAM [Concomitant]
     Active Substance: CLOBAZAM
     Indication: PRODUCT USED FOR UNKNOWN INDICATION
     Route: 065
  2. SABRIL [Suspect]
     Active Substance: VIGABATRIN
     Indication: INFANTILE SPASMS
     Route: 065
     Dates: start: 20150324
  3. SABRIL [Suspect]
     Active Substance: VIGABATRIN
     Route: 065
     Dates: start: 20150324
  4. SABRIL [Suspect]
     Active Substance: VIGABATRIN
     Route: 065
     Dates: start: 20150324
  5. ACTH [Concomitant]
     Active Substance: CORTICOTROPIN
     Indication: PRODUCT USED FOR UNKNOWN INDICATION
     Route: 065

REACTIONS (1)
  - Product preparation error [Unknown]
